FAERS Safety Report 9780981 (Version 2)
Quarter: 2014Q1

REPORT INFORMATION
  Report Type: Spontaneous
  Country: BR (occurrence: BR)
  Receive Date: 20131224
  Receipt Date: 20140103
  Transmission Date: 20141002
  Serious: Yes (Other)
  Sender: FDA-Public Use
  Company Number: BR-JNJFOC-20131208553

PATIENT
  Age: 41 Year
  Sex: Female
  Weight: 50 kg

DRUGS (3)
  1. TYLEX [Suspect]
     Indication: HEADACHE
     Route: 065
  2. RIVOTRIL [Concomitant]
     Indication: PRODUCT USED FOR UNKNOWN INDICATION
     Route: 065
  3. VITAMIN [Concomitant]
     Indication: METABOLIC DISORDER
     Route: 065

REACTIONS (5)
  - Hepatic enzyme increased [Unknown]
  - Syncope [Recovered/Resolved]
  - Abdominal pain [Recovering/Resolving]
  - Crying [Unknown]
  - Muscle spasms [Recovering/Resolving]
